FAERS Safety Report 25620801 (Version 1)
Quarter: 2025Q3

REPORT INFORMATION
  Report Type: Spontaneous
  Country: US (occurrence: US)
  Receive Date: 20250730
  Receipt Date: 20250730
  Transmission Date: 20251021
  Serious: No
  Sender: AMGEN
  Company Number: US-AMGEN-USASP2025147848

PATIENT
  Sex: Female

DRUGS (21)
  1. OTEZLA [Suspect]
     Active Substance: APREMILAST
     Indication: Psoriatic arthropathy
     Dosage: 30 MILLIGRAM, BID
     Route: 048
     Dates: start: 20250627
  2. PREDNISONE [Suspect]
     Active Substance: PREDNISONE
     Indication: Product used for unknown indication
     Route: 065
     Dates: start: 2025
  3. ADACEL TDAP [Concomitant]
     Active Substance: TETANUS TOXOID, REDUCED DIPHTHERIA TOXOID AND ACELLULAR PERTUSSIS VACCINE ADSORBED, TDAP
  4. ALPRAZOLAM [Concomitant]
     Active Substance: ALPRAZOLAM
  5. AMLODIPINE [Concomitant]
     Active Substance: AMLODIPINE BESYLATE
  6. DIAZEPAM [Concomitant]
     Active Substance: DIAZEPAM
  7. ESCITALOPRAM [Concomitant]
     Active Substance: ESCITALOPRAM OXALATE
  8. FLUOCINONIDE [Concomitant]
     Active Substance: FLUOCINONIDE
  9. FLUTICASONE [Concomitant]
     Active Substance: FLUTICASONE
  10. FOLIC ACID [Concomitant]
     Active Substance: FOLIC ACID
  11. FUROSEMIDE [Concomitant]
     Active Substance: FUROSEMIDE
  12. GABAPENTIN [Concomitant]
     Active Substance: GABAPENTIN
  13. Acetaminofen+hidrocodona [Concomitant]
  14. Hydrox [Concomitant]
  15. LOVASTATIN [Concomitant]
     Active Substance: LOVASTATIN
  16. METHOTREXATE [Concomitant]
     Active Substance: METHOTREXATE
  17. NALOXONE [Concomitant]
     Active Substance: NALOXONE
  18. ONDANSETRON [Concomitant]
     Active Substance: ONDANSETRON
  19. TALTZ [Concomitant]
     Active Substance: IXEKIZUMAB
  20. TELMISARTAN [Concomitant]
     Active Substance: TELMISARTAN
  21. Triamcinolon [Concomitant]

REACTIONS (1)
  - Arthritis [Not Recovered/Not Resolved]

NARRATIVE: CASE EVENT DATE: 20250101
